FAERS Safety Report 7167242-6 (Version None)
Quarter: 2010Q4

REPORT INFORMATION
  Report Type: 
  Country: None (occurrence: None)
  Receive Date: 20101202
  Receipt Date: 20101120
  Transmission Date: 20110411
  Serious: Yes (Hospitalization, Other)
  Sender: FDA-Public Use
  Company Number: 2010AP002500

PATIENT
  Age: 79 Year
  Sex: Female

DRUGS (2)
  1. SOTALOL HCL [Suspect]
     Dosage: 40 MG; BID;
  2. OSELTAMIVIR [Suspect]
     Indication: INFLUENZA
     Dosage: 75 MG; BID;

REACTIONS (6)
  - BLOOD POTASSIUM DECREASED [None]
  - COLITIS ISCHAEMIC [None]
  - DRUG INTERACTION [None]
  - INFLUENZA [None]
  - SINUS BRADYCARDIA [None]
  - TORSADE DE POINTES [None]
